FAERS Safety Report 6340514-0 (Version None)
Quarter: 2009Q3

REPORT INFORMATION
  Report Type: 
  Country: None (occurrence: None)
  Receive Date: 20090904
  Receipt Date: 20090902
  Transmission Date: 20100115
  Serious: No
  Sender: FDA-Public Use
  Company Number: CA-JNJFOC-20090807336

PATIENT
  Sex: Male

DRUGS (2)
  1. DURAGESIC-100 [Suspect]
     Indication: PAIN MANAGEMENT
     Route: 062
     Dates: start: 20090818
  2. DURAGESIC-100 [Concomitant]
     Route: 062

REACTIONS (5)
  - ABDOMINAL DISCOMFORT [None]
  - INAPPROPRIATE SCHEDULE OF DRUG ADMINISTRATION [None]
  - PRODUCT QUALITY ISSUE [None]
  - SEDATION [None]
  - THERAPEUTIC RESPONSE DECREASED [None]
